FAERS Safety Report 7318736-1 (Version None)
Quarter: 2011Q1

REPORT INFORMATION
  Report Type: 
  Country: None (occurrence: None)
  Receive Date: 20110228
  Receipt Date: 20100728
  Transmission Date: 20110831
  Serious: No
  Sender: FDA-Public Use
  Company Number: A0844266A

PATIENT
  Age: 48 Year
  Sex: Female

DRUGS (5)
  1. BUTALBITAL [Concomitant]
  2. TOPAMAX [Concomitant]
  3. IMITREX [Concomitant]
  4. ATENOLOL [Concomitant]
  5. IMITREX [Suspect]
     Indication: MIGRAINE
     Dosage: 1UNIT AS REQUIRED
     Route: 058
     Dates: start: 19920101

REACTIONS (3)
  - ADVERSE EVENT [None]
  - PRODUCT QUALITY ISSUE [None]
  - DRUG INEFFECTIVE [None]
